FAERS Safety Report 6771492-8 (Version None)
Quarter: 2010Q2

REPORT INFORMATION
  Report Type: 
  Country: None (occurrence: None)
  Receive Date: 20100616
  Receipt Date: 20100608
  Transmission Date: 20101027
  Serious: Yes (Life-Threatening, Hospitalization, Disabling)
  Sender: FDA-Public Use
  Company Number: CZ-ROCHE-700380

PATIENT
  Sex: Male

DRUGS (5)
  1. BEVACIZUMAB [Suspect]
     Dosage: FREQUENCY: 5 MG/ 2 WEEKS
     Route: 065
     Dates: start: 20090820, end: 20091110
  2. BEVACIZUMAB [Suspect]
     Dosage: FREQUENCY: 5 MG/ 2 WEEKS
     Route: 065
     Dates: start: 20100127, end: 20100323
  3. LEUCOVORIN CALCIUM [Concomitant]
     Indication: CHEMOTHERAPY
  4. FLUOROURACIL [Concomitant]
     Indication: CHEMOTHERAPY
  5. OXALIPLATIN [Concomitant]
     Indication: CHEMOTHERAPY

REACTIONS (4)
  - ABDOMINAL WALL DISORDER [None]
  - ABSCESS [None]
  - ABSCESS RUPTURE [None]
  - GASTROINTESTINAL MOTILITY DISORDER [None]
